FAERS Safety Report 6321580-5 (Version None)
Quarter: 2009Q3

REPORT INFORMATION
  Report Type: 
  Country: None (occurrence: None)
  Receive Date: 20090824
  Receipt Date: 20090813
  Transmission Date: 20100115
  Serious: Yes (Other)
  Sender: FDA-Public Use
  Company Number: GB-JNJFOC-20090708827

PATIENT
  Age: 40 Year
  Sex: Female

DRUGS (2)
  1. REMICADE [Suspect]
     Dosage: GIVEN AS A SLOW INFUSION
     Route: 042
  2. REMICADE [Suspect]
     Indication: CROHN'S DISEASE
     Route: 042

REACTIONS (3)
  - ALTERED VISUAL DEPTH PERCEPTION [None]
  - INFUSION RELATED REACTION [None]
  - MANIA [None]
